FAERS Safety Report 25980987 (Version 1)
Quarter: 2025Q4

REPORT INFORMATION
  Report Type: Spontaneous
  Country: EU (occurrence: EU)
  Receive Date: 20251030
  Receipt Date: 20251030
  Transmission Date: 20260118
  Serious: Yes (Life-Threatening, Hospitalization)
  Sender: DR REDDYS
  Company Number: None

PATIENT
  Age: 28 Year
  Sex: Female

DRUGS (12)
  1. CYCLOPHOSPHAMIDE [Suspect]
     Active Substance: CYCLOPHOSPHAMIDE
     Indication: Choriocarcinoma
     Dosage: 600 MG/M2 INTRAVENOUS ON DAY 8, 7 CYCLES OF EMA/CO
     Route: 042
  2. CYCLOPHOSPHAMIDE [Suspect]
     Active Substance: CYCLOPHOSPHAMIDE
     Indication: Metastases to lung
  3. ETOPOSIDE [Suspect]
     Active Substance: ETOPOSIDE
     Indication: Choriocarcinoma
     Dosage: 100 MG/M2 ON DAYS 1 AND 2, EVERY 14 DAYS, 7 CYCLES OF EMA/CO
  4. ETOPOSIDE [Suspect]
     Active Substance: ETOPOSIDE
     Indication: Metastases to lung
  5. METHOTREXATE [Suspect]
     Active Substance: METHOTREXATE
     Indication: Choriocarcinoma
     Dosage: 100 MG/M2 INTRAVENOUS BOLUS FOLLOWED BY A 12-HOUR INFUSION OF 200 MG/M2 ON DAY 1, EVERY 14 DAYS,  7
     Route: 042
  6. METHOTREXATE [Suspect]
     Active Substance: METHOTREXATE
     Indication: Metastases to lung
     Dosage: 100 MG/M2 INTRAVENOUS BOLUS FOLLOWED BY A 12-HOUR INFUSION OF 200 MG/M2 ON DAY 1, EVERY 14 DAYS, 7 C
     Route: 042
  7. ACTINOMYCIN D [Suspect]
     Active Substance: DACTINOMYCIN
     Indication: Choriocarcinoma
     Dosage: ON DAY 1 AND 2, EVERY 14 DAYS, 7 CYCLES OF EMA/CO
     Route: 042
  8. ACTINOMYCIN D [Suspect]
     Active Substance: DACTINOMYCIN
     Indication: Metastases to lung
  9. VINCRISTINE [Suspect]
     Active Substance: VINCRISTINE
     Indication: Choriocarcinoma
     Dosage: 1 MG/M2 INTRAVENOUS BOLUS ON DAY 8, EVERY 14 DAYS, 7 CYCLES OF EMA/CO
     Route: 042
  10. VINCRISTINE [Suspect]
     Active Substance: VINCRISTINE
     Indication: Metastases to lung
  11. LEUCOVORIN CALCIUM [Suspect]
     Active Substance: LEUCOVORIN CALCIUM
     Indication: Choriocarcinoma
     Dosage: 15 MG ORALLY FOUR TIMES ON DAY 2, EVERY 14 DAYS, 7 CYCLES OF EMA/CO
     Route: 048
  12. LEUCOVORIN CALCIUM [Suspect]
     Active Substance: LEUCOVORIN CALCIUM
     Indication: Metastases to lung

REACTIONS (3)
  - Vaginal haemorrhage [Recovering/Resolving]
  - Subclavian vein thrombosis [Unknown]
  - Condition aggravated [Recovering/Resolving]
